FAERS Safety Report 16300629 (Version 1)
Quarter: 2019Q2

REPORT INFORMATION
  Report Type: Spontaneous
  Country: US (occurrence: US)
  Receive Date: 20190510
  Receipt Date: 20190510
  Transmission Date: 20190711
  Serious: Yes (Other)
  Sender: FDA-Public Use
  Company Number: US-ASPEN-GLO2019US004565

PATIENT
  Age: 13 Month
  Sex: Female

DRUGS (2)
  1. PLERIXAFOR [Suspect]
     Active Substance: PLERIXAFOR
     Indication: PRODUCT USED FOR UNKNOWN INDICATION
     Dosage: 240 MG/KG
     Route: 058
  2. BUSULFAN. [Suspect]
     Active Substance: BUSULFAN
     Indication: BONE MARROW CONDITIONING REGIMEN
     Dosage: 5.6 MG/KG (8 DOSES)
     Route: 065

REACTIONS (1)
  - Bacteraemia [Unknown]
